FAERS Safety Report 4543875-8 (Version None)
Quarter: 2005Q1

REPORT INFORMATION
  Report Type: 
  Country: None (occurrence: None)
  Receive Date: 20050104
  Receipt Date: 20041229
  Transmission Date: 20050727
  Serious: Yes (Hospitalization)
  Sender: FDA-Public Use
  Company Number: 200414892FR

PATIENT
  Age: 75 Year
  Sex: Male

DRUGS (7)
  1. RODOGYL [Suspect]
     Indication: INFECTION
     Route: 048
     Dates: start: 20041102, end: 20041106
  2. RODOGYL [Suspect]
     Indication: PYREXIA
     Route: 048
     Dates: start: 20041102, end: 20041106
  3. PLAVIX [Suspect]
     Indication: MYOCARDIAL ISCHAEMIA
     Route: 048
     Dates: end: 20041117
  4. RIVOTRIL [Suspect]
     Indication: INSOMNIA
     Route: 048
     Dates: start: 20040801, end: 20041119
  5. NEXIUM [Suspect]
     Indication: GASTRITIS
     Route: 048
     Dates: start: 20040818, end: 20041119
  6. AMAREL [Concomitant]
     Indication: DIABETES MELLITUS
     Route: 048
  7. ALLOPURINOL [Concomitant]
     Indication: GOUT
     Route: 048

REACTIONS (2)
  - AGRANULOCYTOSIS [None]
  - HYPERTHERMIA [None]
